FAERS Safety Report 14135017 (Version 1)
Quarter: 2017Q4

REPORT INFORMATION
  Report Type: Spontaneous
  Country: US (occurrence: US)
  Receive Date: 20171027
  Receipt Date: 20171027
  Transmission Date: 20180321
  Serious: No
  Sender: FDA-Public Use
  Company Number: US-MIST-TIR-2017-0822

PATIENT
  Age: 80 Year
  Sex: Female
  Weight: 57.2 kg

DRUGS (3)
  1. TIROSINT [Suspect]
     Active Substance: LEVOTHYROXINE SODIUM
     Dosage: 1 25MCG CAPSULE DAILY
     Route: 048
     Dates: start: 20170824
  2. TIROSINT [Suspect]
     Active Substance: LEVOTHYROXINE SODIUM
     Indication: HYPOTHYROIDISM
     Dosage: 1 13MCG AND 1 25MCG CAPSULE DAILY
     Route: 048
     Dates: end: 20170823
  3. TIROSINT [Suspect]
     Active Substance: LEVOTHYROXINE SODIUM
     Indication: HYPOTHYROIDISM
     Dosage: 1 13MCG AND 1 25MCG CAPSULE DAILY
     Route: 048
     Dates: end: 20170823

REACTIONS (2)
  - Inappropriate schedule of drug administration [Unknown]
  - No adverse event [Unknown]

NARRATIVE: CASE EVENT DATE: 20170824
